FAERS Safety Report 4453603-2 (Version None)
Quarter: 2004Q3

REPORT INFORMATION
  Report Type: 
  Country: None (occurrence: None)
  Receive Date: 20040920
  Receipt Date: 20040907
  Transmission Date: 20050211
  Serious: Yes (Hospitalization)
  Sender: FDA-Public Use
  Company Number: PHBS2004ZA11962

PATIENT
  Sex: Female

DRUGS (1)
  1. ZELNORM [Suspect]
     Indication: FAECES HARD
     Dosage: 6 MG, UNK
     Route: 048

REACTIONS (2)
  - ABDOMINAL PAIN [None]
  - FAECALOMA [None]
